FAERS Safety Report 9685190 (Version 1)
Quarter: 2013Q4

REPORT INFORMATION
  Report Type: Spontaneous
  Country: US (occurrence: None)
  Receive Date: 20131112
  Receipt Date: 20131112
  Transmission Date: 20140711
  Serious: Yes (Other)
  Sender: FDA-Public Use
  Company Number: None

PATIENT
  Age: 66 Year
  Sex: Female
  Weight: 55.34 kg

DRUGS (1)
  1. REQUIP .25 [Suspect]
     Indication: RESTLESS LEGS SYNDROME
     Dosage: 1 PER NIGHT
     Route: 048
     Dates: start: 20090301, end: 20130201

REACTIONS (6)
  - Fatigue [None]
  - Insomnia [None]
  - Decreased appetite [None]
  - Weight decreased [None]
  - Impaired driving ability [None]
  - Somnolence [None]
